FAERS Safety Report 24310018 (Version 2)
Quarter: 2024Q3

REPORT INFORMATION
  Report Type: Spontaneous
  Country: US (occurrence: US)
  Receive Date: 20240912
  Receipt Date: 20240919
  Transmission Date: 20241017
  Serious: Yes (Hospitalization, Other)
  Sender: ALKEM
  Company Number: None

PATIENT
  Age: 73 Year
  Sex: Female

DRUGS (10)
  1. TACROLIMUS [Suspect]
     Active Substance: TACROLIMUS
     Indication: Immunosuppressant drug therapy
     Dosage: UNK (DOSE REDUCED)
     Route: 065
  2. VANCOMYCIN [Suspect]
     Active Substance: VANCOMYCIN
     Indication: Antibiotic therapy
     Dosage: UNK (FOR A WEEK)
     Route: 065
  3. CEFEPIME [Suspect]
     Active Substance: CEFEPIME HYDROCHLORIDE
     Indication: Antibiotic therapy
     Dosage: UNK (FOR A WEEK)
     Route: 065
  4. AMPHOTERICIN B [Suspect]
     Active Substance: AMPHOTERICIN B
     Indication: Meningitis
     Dosage: UNK (FOR A WEEK)
     Route: 065
  5. AMPHOTERICIN B [Suspect]
     Active Substance: AMPHOTERICIN B
     Indication: Encephalitis
  6. AMPHOTERICIN B [Suspect]
     Active Substance: AMPHOTERICIN B
     Indication: Antifungal treatment
  7. MEROPENEM [Suspect]
     Active Substance: MEROPENEM
     Indication: Meningitis
     Dosage: UNK (FOR A WEEK)
     Route: 065
  8. MEROPENEM [Suspect]
     Active Substance: MEROPENEM
     Indication: Encephalitis
  9. PREDNISONE [Suspect]
     Active Substance: PREDNISONE
     Indication: Immunosuppressant drug therapy
     Dosage: 20 MILLIGRAM, QD
     Route: 065
  10. PREDNISONE [Suspect]
     Active Substance: PREDNISONE
     Indication: Immune thrombocytopenia
     Dosage: UNK (DOSE REDUCED)
     Route: 065

REACTIONS (12)
  - Kaposi^s sarcoma [Unknown]
  - Bone marrow failure [Recovering/Resolving]
  - Pancytopenia [Recovering/Resolving]
  - Encephalitis herpes [Recovering/Resolving]
  - Enterococcal infection [Unknown]
  - Oral herpes [Unknown]
  - Herpes simplex [Unknown]
  - Condition aggravated [Unknown]
  - Oral herpes [Unknown]
  - Mental status changes [Recovering/Resolving]
  - Human herpesvirus 8 infection [Recovering/Resolving]
  - Therapy non-responder [Unknown]

NARRATIVE: CASE EVENT DATE: 20220101
